FAERS Safety Report 17256488 (Version 1)
Quarter: 2020Q1

REPORT INFORMATION
  Report Type: Spontaneous
  Country: US (occurrence: US)
  Receive Date: 20200110
  Receipt Date: 20200110
  Transmission Date: 20200409
  Serious: No
  Sender: FDA-Public Use
  Company Number: US-GILEAD-2020-0445856

PATIENT
  Sex: Male

DRUGS (2)
  1. METHADONE HYDROCHLORIDE. [Concomitant]
     Active Substance: METHADONE HYDROCHLORIDE
     Dosage: UNKNOWN
  2. SOFOSBUVIR;VELPATASVIR [Suspect]
     Active Substance: SOFOSBUVIR\VELPATASVIR
     Indication: HEPATITIS CHRONIC ACTIVE
     Dosage: 1 DOSAGE FORM, QD
     Route: 048
     Dates: start: 201912

REACTIONS (1)
  - Dry skin [Not Recovered/Not Resolved]
